FAERS Safety Report 25375307 (Version 1)
Quarter: 2025Q2

REPORT INFORMATION
  Report Type: Spontaneous
  Country: FR (occurrence: FR)
  Receive Date: 20250529
  Receipt Date: 20250529
  Transmission Date: 20250717
  Serious: Yes (Disabling)
  Sender: MYLAN
  Company Number: None

PATIENT
  Age: 65 Year
  Sex: Male
  Weight: 64 kg

DRUGS (22)
  1. BUDESONIDE [Suspect]
     Active Substance: BUDESONIDE
     Indication: NSAID exacerbated respiratory disease
     Dosage: 1 DOSAGE FORM, QD (1 INHALATION/DAY)
     Dates: start: 201711
  2. CARBOPLATIN [Suspect]
     Active Substance: CARBOPLATIN
     Indication: Lung adenocarcinoma
     Dates: start: 20250306, end: 20250306
  3. CARBOPLATIN [Suspect]
     Active Substance: CARBOPLATIN
     Dates: start: 20250403, end: 20250403
  4. CARBOPLATIN [Suspect]
     Active Substance: CARBOPLATIN
     Dates: start: 20250512, end: 20250512
  5. PREDNISONE [Suspect]
     Active Substance: PREDNISONE
     Indication: Behcet^s syndrome
     Dosage: 15 MILLIGRAM, QD
     Dates: start: 201806
  6. PREDNISONE [Suspect]
     Active Substance: PREDNISONE
     Dosage: 80 MILLIGRAM, QD (EVERY MORNING)
     Dates: start: 202501
  7. PREDNISONE [Suspect]
     Active Substance: PREDNISONE
     Dosage: 60 MILLIGRAM, QD (EVERY MORNING)
     Dates: start: 20250512
  8. METHYLPREDNISOLONE [Suspect]
     Active Substance: METHYLPREDNISOLONE
     Indication: Behcet^s syndrome
     Dosage: 120 MILLIGRAM, QD
     Dates: start: 20250128, end: 20250201
  9. ALIMTA [Suspect]
     Active Substance: PEMETREXED DISODIUM
     Indication: Lung adenocarcinoma
     Dates: start: 20250306, end: 20250306
  10. ALIMTA [Suspect]
     Active Substance: PEMETREXED DISODIUM
     Dates: start: 20250403, end: 20250403
  11. ALIMTA [Suspect]
     Active Substance: PEMETREXED DISODIUM
     Dates: start: 20250512, end: 20250512
  12. COLCHICINE [Concomitant]
     Active Substance: COLCHICINE
     Indication: Behcet^s syndrome
     Dosage: 1 DOSAGE FORM, QD
  13. Ramipril/hydrochlorothiazide eg [Concomitant]
     Dosage: 1 DOSAGE FORM, QD (1 TABLET IN THE MORNING)
  14. METHOTREXATE [Concomitant]
     Active Substance: METHOTREXATE
     Dosage: 20 MILLIGRAM, QW (ONCE A WEEK ON TUESDAY)
  15. FOLIC ACID [Concomitant]
     Active Substance: FOLIC ACID
     Dosage: 10 MILLIGRAM, QW (2 TABLETS IN THE MORNING EVERY THURSDAY)
  16. RUPATADINE [Concomitant]
     Active Substance: RUPATADINE
     Dosage: 10 MILLIGRAM, QD (1 TABLET IN THE MORNING)
  17. SERETIDE [Concomitant]
     Active Substance: FLUTICASONE PROPIONATE\SALMETEROL XINAFOATE
     Dosage: 4 DOSAGE FORM, QD (2 PUFFS MORNING AND EVENING)
  18. ACETAMINOPHEN [Concomitant]
     Active Substance: ACETAMINOPHEN
     Dosage: 1 GRAM, Q6H
  19. CICLOPIROX OLAMINE [Concomitant]
     Active Substance: CICLOPIROX OLAMINE
     Dosage: 1 DOSAGE FORM, QW (1 BOTTLE PER MONTH AND 1 SHAMPOO PER WEEK WHEN TREATING THE FACE)
  20. BUDESONIDE [Concomitant]
     Active Substance: BUDESONIDE
     Dosage: 1 DOSAGE FORM, QD
  21. BACTRIM [Concomitant]
     Active Substance: SULFAMETHOXAZOLE\TRIMETHOPRIM
     Dosage: 800 MILLIGRAM, QD (800 MG EVERY MORNING)
  22. BACTRIM [Concomitant]
     Active Substance: SULFAMETHOXAZOLE\TRIMETHOPRIM
     Dosage: 800 MILLIGRAM, BID (800 MG MORNING AND EVENING)
     Dates: start: 20250327, end: 20250403

REACTIONS (1)
  - Tendon rupture [Not Recovered/Not Resolved]

NARRATIVE: CASE EVENT DATE: 20250405
